FAERS Safety Report 11312568 (Version 1)
Quarter: 2015Q3

REPORT INFORMATION
  Report Type: Spontaneous
  Country: US (occurrence: None)
  Receive Date: 20150724
  Receipt Date: 20150724
  Transmission Date: 20151125
  Serious: No
  Sender: FDA-Public Use
  Company Number: None

PATIENT
  Age: 31 Year
  Sex: Female
  Weight: 68.04 kg

DRUGS (4)
  1. PRENATAL VITAMIN [Concomitant]
     Active Substance: VITAMINS
  2. PENICILLIN VK [Suspect]
     Active Substance: PENICILLIN V POTASSIUM
  3. PROMETRIUM [Concomitant]
     Active Substance: PROGESTERONE
  4. TYLENOL EXTRA STRENGTH [Concomitant]
     Active Substance: ACETAMINOPHEN

REACTIONS (8)
  - Oropharyngeal pain [None]
  - Pyrexia [None]
  - Asthenia [None]
  - Ear pruritus [None]
  - Sinusitis [None]
  - Upper-airway cough syndrome [None]
  - Pain [None]
  - Malaise [None]

NARRATIVE: CASE EVENT DATE: 20150717
